FAERS Safety Report 18930044 (Version 1)
Quarter: 2021Q1

REPORT INFORMATION
  Report Type: Spontaneous
  Country: CH (occurrence: CH)
  Receive Date: 20210223
  Receipt Date: 20210223
  Transmission Date: 20210420
  Serious: Yes (Other)
  Sender: FDA-Public Use
  Company Number: CH-TEVA-2021-CH-1883396

PATIENT
  Age: 57 Year
  Sex: Female

DRUGS (2)
  1. DILTIAZEM. [Suspect]
     Active Substance: DILTIAZEM
     Route: 065
     Dates: start: 202012
  2. AROMASIN [Interacting]
     Active Substance: EXEMESTANE
     Route: 065
     Dates: start: 202012, end: 20210112

REACTIONS (3)
  - Drug interaction [Recovered/Resolved]
  - Anxiety [Recovered/Resolved]
  - Agitation [Recovered/Resolved]

NARRATIVE: CASE EVENT DATE: 202012
